APPROVED DRUG PRODUCT: TOLVAPTAN
Active Ingredient: TOLVAPTAN
Strength: 15MG
Dosage Form/Route: TABLET;ORAL
Application: A218381 | Product #001 | TE Code: AB2
Applicant: APOTEX INC
Approved: Nov 10, 2025 | RLD: No | RS: No | Type: RX